FAERS Safety Report 25286511 (Version 6)
Quarter: 2025Q3

REPORT INFORMATION
  Report Type: Spontaneous
  Country: US (occurrence: US)
  Receive Date: 20250509
  Receipt Date: 20250922
  Transmission Date: 20251020
  Serious: Yes (Other)
  Sender: SUNOVION
  Company Number: US-SMPA-2025SPA004807

PATIENT
  Age: 72 Year
  Sex: Male

DRUGS (19)
  1. ORGOVYX [Suspect]
     Active Substance: RELUGOLIX
     Indication: Prostate cancer
     Dosage: 360 MG, SINGLE
     Route: 048
     Dates: start: 202309, end: 202309
  2. ORGOVYX [Suspect]
     Active Substance: RELUGOLIX
     Dosage: 120 MG, QD
     Route: 048
     Dates: start: 202309
  3. NUBEQA [Suspect]
     Active Substance: DAROLUTAMIDE
     Indication: Product used for unknown indication
     Route: 048
  4. MEGESTROL [Suspect]
     Active Substance: MEGESTROL
     Indication: Product used for unknown indication
     Route: 048
  5. PEPCID [Concomitant]
     Active Substance: FAMOTIDINE
     Route: 048
  6. VENLAFAXINE [Concomitant]
     Active Substance: VENLAFAXINE HYDROCHLORIDE
     Route: 048
  7. ROSUVASTATIN [Concomitant]
     Active Substance: ROSUVASTATIN
     Route: 048
  8. VITAMINS [Concomitant]
     Active Substance: VITAMINS
     Route: 048
  9. ASPIRIN [Concomitant]
     Active Substance: ASPIRIN
     Route: 048
  10. COENZYME Q10 [Concomitant]
     Active Substance: DIETARY SUPPLEMENT\UBIDECARENONE
     Route: 048
  11. IRON [Concomitant]
     Active Substance: IRON
     Route: 048
  12. CALCIUM CARBONATE [Concomitant]
     Active Substance: CALCIUM CARBONATE
     Route: 048
  13. VITAMIN D3 [Concomitant]
     Active Substance: CHOLECALCIFEROL
     Route: 048
  14. FISH OIL [Concomitant]
     Active Substance: FISH OIL
     Route: 048
  15. VITAMIN C [Concomitant]
     Active Substance: ASCORBIC ACID
     Route: 048
  16. PENICILLIN G SODIUM [Concomitant]
     Active Substance: PENICILLIN G SODIUM
  17. CELECOXIB [Concomitant]
     Active Substance: CELECOXIB
  18. Bilatex [Concomitant]
  19. SEASONALE [Concomitant]
     Active Substance: ETHINYL ESTRADIOL\LEVONORGESTREL

REACTIONS (11)
  - Electrocardiogram QT prolonged [Unknown]
  - Palpitations [Unknown]
  - Dyspnoea [Unknown]
  - Muscle atrophy [Unknown]
  - Feeling abnormal [Unknown]
  - Bone density decreased [Unknown]
  - Nausea [Unknown]
  - Hypertension [Unknown]
  - Hot flush [Not Recovered/Not Resolved]
  - Fatigue [Not Recovered/Not Resolved]
  - Weight increased [Unknown]
